FAERS Safety Report 5007958-0 (Version None)
Quarter: 2006Q2

REPORT INFORMATION
  Report Type: 
  Country: None (occurrence: None)
  Receive Date: 20060517
  Receipt Date: 20060509
  Transmission Date: 20061013
  Serious: Yes (Hospitalization)
  Sender: FDA-Public Use
  Company Number: 2006061768

PATIENT
  Age: 75 Year
  Sex: Female

DRUGS (7)
  1. DEPO-PROVERA [Suspect]
     Indication: ANOREXIA
     Dosage: 1000 MG (1000 MG, SINGLE INJECTION), INTRAMUSCULAR
     Route: 030
     Dates: start: 20060327, end: 20060327
  2. SYNACTHEN (TETRACOSACTIDE) [Suspect]
     Indication: ANOREXIA
     Dosage: UNKNOWN (EVERY OTHER DAY), INTRAVENOUS
     Route: 042
     Dates: start: 20060327, end: 20060331
  3. BISOPROLOL FUMARATE [Concomitant]
  4. LOSAZID (HYDROCHLOROTHIAZIDE, LOSARTAN POTASSIUM) [Concomitant]
  5. CLONIDINE [Concomitant]
  6. GLUCOPHAGE [Concomitant]
  7. COUMADIN [Concomitant]

REACTIONS (2)
  - HYPOTENSION [None]
  - RENAL FAILURE ACUTE [None]
